FAERS Safety Report 6851229-4 (Version None)
Quarter: 2010Q3

REPORT INFORMATION
  Report Type: 
  Country: None (occurrence: None)
  Receive Date: 20100717
  Receipt Date: 20100702
  Transmission Date: 20110219
  Serious: Yes (Hospitalization, Other)
  Sender: FDA-Public Use
  Company Number: AT-PAR PHARMACEUTICAL, INC-2010SCPR001428

PATIENT

DRUGS (13)
  1. DEXAMETHASONE ACETATE [Suspect]
     Indication: MULTIPLE MYELOMA
     Dosage: 40 MG, QD ON DAYS 1-4 OF 21 DAYS CYCLE
     Route: 048
  2. DEXAMETHASONE ACETATE [Suspect]
     Indication: RENAL IMPAIRMENT
     Dosage: 40 MG / DAY ON DAYS 1-4,9-12 AND 17-20 OF 28 DAY CYCLE (OF SECOND LINE THERAPY)
     Route: 048
  3. DEXAMETHASONE ACETATE [Suspect]
     Dosage: 40 MG, WEEKLY (AFTER THE 1ST CYCLE OF SECOND LINE THERAPY)
     Route: 065
  4. BORTEZOMIB [Suspect]
     Indication: MULTIPLE MYELOMA
     Dosage: 1.2 MG/M2 BLOUS ON DAYS 1, 4, 8 AND 11 OF 21 DAYS CYCLE
     Route: 042
  5. BORTEZOMIB [Suspect]
     Indication: RENAL IMPAIRMENT
  6. DOXORUBICIN HCL [Suspect]
     Indication: MULTIPLE MYELOMA
     Dosage: 9 MG/M2, ON DAYS 1-4 OF 21 DAYS CYCLE
     Route: 065
  7. DOXORUBICIN HCL [Suspect]
     Indication: RENAL IMPAIRMENT
  8. OPIOIDS [Concomitant]
     Indication: MULTIPLE MYELOMA
     Dosage: UNK
     Route: 065
  9. OPIOIDS [Concomitant]
     Indication: RENAL IMPAIRMENT
  10. METAMIZOL [Concomitant]
     Indication: MULTIPLE MYELOMA
     Dosage: UNK
     Route: 065
  11. METAMIZOL [Concomitant]
     Indication: RENAL IMPAIRMENT
  12. EPOETIN ALFA [Concomitant]
     Indication: PRODUCT USED FOR UNKNOWN INDICATION
     Dosage: 10,000 IE 3 TIMES A WEEK
     Route: 065
  13. ZOLEDRONIC ACID [Concomitant]
     Indication: PRODUCT USED FOR UNKNOWN INDICATION
     Dosage: 4 MG, ONCE MONTHLY
     Route: 065

REACTIONS (9)
  - ANAEMIA [None]
  - DISEASE PROGRESSION [None]
  - FEBRILE INFECTION [None]
  - FEBRILE NEUTROPENIA [None]
  - MALIGNANT NEOPLASM PROGRESSION [None]
  - MULTIPLE MYELOMA [None]
  - NO THERAPEUTIC RESPONSE [None]
  - RENAL FAILURE [None]
  - THROMBOCYTOPENIA [None]
